FAERS Safety Report 4356587-0 (Version None)
Quarter: 2004Q2

REPORT INFORMATION
  Report Type: 
  Country: None (occurrence: None)
  Receive Date: 20040510
  Receipt Date: 20040510
  Transmission Date: 20050107
  Serious: Yes (Other)
  Sender: FDA-Public Use
  Company Number: None

PATIENT
  Age: 34 Year
  Sex: Female
  Weight: 95.2554 kg

DRUGS (1)
  1. HALCION [Suspect]
     Indication: INSOMNIA
     Dates: start: 20000810, end: 20031218

REACTIONS (8)
  - AGGRESSION [None]
  - AGITATION [None]
  - CONFUSIONAL STATE [None]
  - DRUG DEPENDENCE [None]
  - IRRITABILITY [None]
  - PARANOIA [None]
  - PERSONALITY CHANGE [None]
  - THINKING ABNORMAL [None]
